FAERS Safety Report 21930391 (Version 1)
Quarter: 2023Q1

REPORT INFORMATION
  Report Type: Spontaneous
  Country: US (occurrence: None)
  Receive Date: 20230130
  Receipt Date: 20230130
  Transmission Date: 20230417
  Serious: Yes (Hospitalization)
  Sender: FDA-Public Use
  Company Number: None

PATIENT
  Sex: Male

DRUGS (1)
  1. ADVATE [Suspect]
     Active Substance: ANTIHEMOPHILIC FACTOR, HUMAN RECOMBINANT
     Indication: Factor VIII deficiency
     Dosage: 2000 UNITS TWICE DAILY AS NEEDED INTRAVENOUSLY? ?
     Route: 042
     Dates: start: 20200903

REACTIONS (4)
  - Haemarthrosis [None]
  - Haemorrhage [None]
  - Seizure [None]
  - Upper limb fracture [None]
